FAERS Safety Report 22290079 (Version 1)
Quarter: 2023Q2

REPORT INFORMATION
  Report Type: Report from Study
  Country: CL (occurrence: CL)
  Receive Date: 20230505
  Receipt Date: 20230505
  Transmission Date: 20230721
  Serious: Yes (Other)
  Sender: FDA-Public Use
  Company Number: CL-002147023-NVSC2023CL094976

PATIENT
  Age: 58 Year
  Sex: Female

DRUGS (2)
  1. COSENTYX [Suspect]
     Active Substance: SECUKINUMAB
     Indication: Psoriatic arthropathy
     Dosage: 150 MG, QW
     Route: 058
  2. COSENTYX [Suspect]
     Active Substance: SECUKINUMAB
     Dosage: 150 MG
     Route: 058
     Dates: start: 20230419

REACTIONS (5)
  - Thrombosis [Unknown]
  - General physical health deterioration [Unknown]
  - COVID-19 [Unknown]
  - Haematoma [Unknown]
  - Inappropriate schedule of product administration [Unknown]
